FAERS Safety Report 9229682 (Version 2)
Quarter: 2013Q2

REPORT INFORMATION
  Report Type: Spontaneous
  Country: BR (occurrence: BR)
  Receive Date: 20130415
  Receipt Date: 20130524
  Transmission Date: 20140414
  Serious: Yes (Hospitalization)
  Sender: FDA-Public Use
  Company Number: BR-BIOGENIDEC-2013BI032644

PATIENT
  Age: 78 Year
  Sex: Female

DRUGS (8)
  1. AVONEX [Suspect]
     Indication: MULTIPLE SCLEROSIS
     Route: 030
     Dates: start: 20040401
  2. ALDACTONE (SPIRONOLACTONE) [Concomitant]
     Indication: CARDIAC DISORDER
  3. MONOCORDIL (5-ISOSORBIDE MONONITRATE) [Concomitant]
     Indication: CARDIAC DISORDER
  4. METIDORTEN (PREDNISONE) [Concomitant]
     Indication: MULTIPLE SCLEROSIS
  5. CARDIZEM (DILTIAZEM HYDROCHLORIDE) [Concomitant]
     Indication: CARDIAC DISORDER
  6. ACETYLSALICYLIC ACID [Concomitant]
     Indication: CARDIAC DISORDER
  7. LIPITOR (ATORVASTATIN CALCIUM) [Concomitant]
     Indication: BLOOD CHOLESTEROL ABNORMAL
  8. ELAVIL (AMITRIPTYLINE HYDROCLORIDE) [Concomitant]
     Indication: DEPRESSED MOOD

REACTIONS (2)
  - Pneumonia [Recovered/Resolved]
  - Mobility decreased [Not Recovered/Not Resolved]
